FAERS Safety Report 16295728 (Version 1)
Quarter: 2019Q2

REPORT INFORMATION
  Report Type: Spontaneous
  Country: US (occurrence: US)
  Receive Date: 20190510
  Receipt Date: 20190510
  Transmission Date: 20190711
  Serious: No
  Sender: FDA-Public Use
  Company Number: US-ALKERMES INC.-ALK-2019-000701

PATIENT
  Age: 34 Year
  Sex: Male
  Weight: 90.7 kg

DRUGS (1)
  1. VIVITROL [Suspect]
     Active Substance: NALTREXONE
     Indication: DRUG DEPENDENCE
     Dosage: 380 MG, QMO
     Route: 030
     Dates: start: 20170210

REACTIONS (3)
  - Abdominal pain upper [Recovered/Resolved]
  - Groin pain [Recovered/Resolved]
  - Infection [Recovered/Resolved]

NARRATIVE: CASE EVENT DATE: 201808
